FAERS Safety Report 7829255-8 (Version None)
Quarter: 2011Q4

REPORT INFORMATION
  Report Type: 
  Country: None (occurrence: None)
  Receive Date: 20111020
  Receipt Date: 20111019
  Transmission Date: 20120403
  Serious: No
  Sender: FDA-Public Use
  Company Number: US-B.I. PHARMACEUTICALS,INC./RIDGEFIELD-2011-BP-03810BP

PATIENT
  Sex: Female

DRUGS (8)
  1. DIGOXIN [Concomitant]
     Indication: ATRIAL FIBRILLATION
     Route: 048
     Dates: start: 20060101
  2. METOPROLOL TARTRATE [Concomitant]
     Indication: HYPERTENSION
     Dosage: 200 MG
     Route: 048
     Dates: start: 20050101
  3. PRADAXA [Suspect]
     Indication: ATRIAL FIBRILLATION
     Dosage: 300 MG
     Route: 048
     Dates: start: 20110127, end: 20110601
  4. KLOR-CON [Concomitant]
     Indication: MUSCLE SPASMS
     Dosage: 20 MEQ
     Route: 048
     Dates: start: 20100101
  5. ALLEGRA [Concomitant]
     Indication: HYPERSENSITIVITY
     Dosage: 180 MG
     Route: 048
     Dates: start: 20050101
  6. FUROSEMIDE [Concomitant]
     Indication: FLUID RETENTION
     Dosage: 40 MG
     Route: 048
     Dates: start: 20090101
  7. MAGNESIUM OXIDE [Concomitant]
     Indication: MUSCLE SPASMS
     Dosage: 400 MG
     Route: 048
     Dates: start: 20100101
  8. RESTASIS [Concomitant]
     Indication: DRY EYE
     Dosage: 0.4 ML
     Dates: start: 20060101

REACTIONS (5)
  - OESOPHAGITIS [None]
  - THROAT IRRITATION [None]
  - GINGIVAL BLEEDING [None]
  - GASTRITIS [None]
  - GASTROOESOPHAGEAL REFLUX DISEASE [None]
